FAERS Safety Report 4891960-3 (Version None)
Quarter: 2006Q1

REPORT INFORMATION
  Report Type: 
  Country: None (occurrence: None)
  Receive Date: 20060124
  Receipt Date: 20060117
  Transmission Date: 20060701
  Serious: Yes (Hospitalization)
  Sender: FDA-Public Use
  Company Number: 220896

PATIENT
  Age: 62 Year
  Sex: Female
  Weight: 44.7 kg

DRUGS (2)
  1. ERLOTINIB (ERLOTINIB)TABLET [Suspect]
     Indication: NON-SMALL CELL LUNG CANCER
     Dosage: 150 MG, QD, ORAL
     Route: 048
     Dates: start: 20051019, end: 20060110
  2. AVASTIN [Suspect]
     Indication: NON-SMALL CELL LUNG CANCER
     Dosage: 15 MG/KG, Q3W, INTRAVENOUS
     Route: 042
     Dates: start: 20051019

REACTIONS (2)
  - DISEASE RECURRENCE [None]
  - MALIGNANT PLEURAL EFFUSION [None]
